FAERS Safety Report 18273735 (Version 2)
Quarter: 2020Q3

REPORT INFORMATION
  Report Type: Report from Study
  Country: None (occurrence: US)
  Receive Date: 20200916
  Receipt Date: 20200918
  Transmission Date: 20201103
  Serious: Yes (Hospitalization)
  Sender: FDA-Public Use
  Company Number: US-ABBVIE-20K-163-3548183-00

PATIENT
  Age: 65 Year
  Sex: Female

DRUGS (8)
  1. VENCLEXTA [Suspect]
     Active Substance: VENETOCLAX
     Route: 048
     Dates: start: 20200513, end: 20200627
  2. VENCLEXTA [Suspect]
     Active Substance: VENETOCLAX
     Indication: ACUTE MYELOID LEUKAEMIA
     Route: 048
     Dates: start: 20200428, end: 20200429
  3. POSACONAZOLE [Concomitant]
     Active Substance: POSACONAZOLE
     Indication: PRODUCT USED FOR UNKNOWN INDICATION
     Dates: start: 20200513
  4. CYTARABINE. [Concomitant]
     Active Substance: CYTARABINE
     Indication: PRODUCT USED FOR UNKNOWN INDICATION
     Dosage: IV
  5. VENCLEXTA [Suspect]
     Active Substance: VENETOCLAX
     Route: 048
     Dates: start: 20200429, end: 20200430
  6. VENCLEXTA [Suspect]
     Active Substance: VENETOCLAX
     Route: 048
     Dates: start: 20200430, end: 20200512
  7. VIDAZA [Concomitant]
     Active Substance: AZACITIDINE
     Indication: PRODUCT USED FOR UNKNOWN INDICATION
  8. CLOFARABINE. [Concomitant]
     Active Substance: CLOFARABINE
     Indication: PRODUCT USED FOR UNKNOWN INDICATION
     Dosage: IV

REACTIONS (2)
  - Chemotherapy [Unknown]
  - Off label use [Recovered/Resolved]

NARRATIVE: CASE EVENT DATE: 20200428
